FAERS Safety Report 20504837 (Version 4)
Quarter: 2022Q2

REPORT INFORMATION
  Report Type: Spontaneous
  Country: US (occurrence: US)
  Receive Date: 20220223
  Receipt Date: 20220402
  Transmission Date: 20220721
  Serious: Yes (Hospitalization, Other)
  Sender: FDA-Public Use
  Company Number: US-ORGANON-O2202USA001712

PATIENT
  Age: 62 Year
  Sex: Female

DRUGS (4)
  1. FOSAMAX [Suspect]
     Active Substance: ALENDRONATE SODIUM
     Indication: Osteoporosis
     Dosage: 1 PILL PER WEEK
     Route: 048
     Dates: start: 20200919, end: 20210128
  2. TOPROL XL [Concomitant]
     Active Substance: METOPROLOL SUCCINATE
     Dosage: UNK
  3. METOPROLOL SUCCINATE [Concomitant]
     Active Substance: METOPROLOL SUCCINATE
     Dosage: UNK
  4. TOPROL XL [Concomitant]
     Active Substance: METOPROLOL SUCCINATE
     Dosage: UNK

REACTIONS (5)
  - Osteomyelitis [Not Recovered/Not Resolved]
  - Tooth loss [Not Recovered/Not Resolved]
  - Hypertension [Not Recovered/Not Resolved]
  - Gingivitis [Unknown]
  - Oral surgery [Unknown]

NARRATIVE: CASE EVENT DATE: 20201101
